FAERS Safety Report 20954960 (Version 1)
Quarter: 2022Q2

REPORT INFORMATION
  Report Type: Spontaneous
  Country: IT (occurrence: IT)
  Receive Date: 20220614
  Receipt Date: 20220614
  Transmission Date: 20220720
  Serious: Yes (Congenital Anomaly, Other)
  Sender: FDA-Public Use
  Company Number: IT-AUROBINDO-AUR-APL-2017-44766

PATIENT
  Age: 66 Year
  Sex: Male
  Weight: 69 kg

DRUGS (7)
  1. OXALIPLATIN [Suspect]
     Active Substance: OXALIPLATIN
     Indication: Colon cancer
     Dosage: 1700 MILLIGRAM, CYCLICAL
     Route: 042
     Dates: start: 20161122
  2. FLUOROURACIL [Suspect]
     Active Substance: FLUOROURACIL
     Indication: Colon cancer
     Dosage: 1700 MILLIGRAM, CYCLICAL
     Route: 042
     Dates: start: 20161123
  3. VECTIBIX [Suspect]
     Active Substance: PANITUMUMAB
     Indication: Colon cancer metastatic
     Dosage: 450 MILLIGRAM, EVERY 2 WEEKS
     Route: 042
     Dates: start: 20161128
  4. VECTIBIX [Suspect]
     Active Substance: PANITUMUMAB
     Indication: Colon cancer
     Dosage: 300 MILLIGRAM, EVERY 2 WEEKS
     Route: 042
     Dates: start: 20170102
  5. LEUCOVORIN CALCIUM [Suspect]
     Active Substance: LEUCOVORIN CALCIUM
     Indication: Colon cancer
     Dosage: 1700 MILLIGRAM, CYCLICAL
     Route: 042
     Dates: start: 20161123
  6. FLUOROURACIL\LEUCOVORIN CALCIUM\OXALIPLATIN [Suspect]
     Active Substance: FLUOROURACIL\LEUCOVORIN CALCIUM\OXALIPLATIN
     Indication: Colon cancer metastatic
     Dosage: 1700 MILLIGRAM, CYCLICAL (Q2W)
     Route: 042
     Dates: start: 20161123, end: 20170221
  7. FLUOROURACIL\LEUCOVORIN CALCIUM\OXALIPLATIN [Suspect]
     Active Substance: FLUOROURACIL\LEUCOVORIN CALCIUM\OXALIPLATIN
     Dosage: 1700 MILLIGRAM, EVERY 2 WEEKS
     Route: 042
     Dates: start: 20170102

REACTIONS (17)
  - Paronychia [Recovered/Resolved]
  - Erythema multiforme [Recovered/Resolved]
  - Supraventricular tachycardia [Recovered/Resolved]
  - Pyrexia [Recovered/Resolved]
  - Skin exfoliation [Recovered/Resolved]
  - Dry skin [Recovered/Resolved]
  - Neuralgia [Recovered/Resolved]
  - Nausea [Recovered/Resolved]
  - Rash [Recovered/Resolved]
  - Dermatitis acneiform [Recovered/Resolved]
  - Xerosis [Recovered/Resolved]
  - Astringent therapy [Recovered/Resolved]
  - Mucocutaneous rash [Unknown]
  - Skin toxicity [Recovered/Resolved]
  - Erythema [Recovered/Resolved]
  - Scab [Recovered/Resolved]
  - Diarrhoea [Recovered/Resolved]

NARRATIVE: CASE EVENT DATE: 20170102
